FAERS Safety Report 18603526 (Version 1)
Quarter: 2020Q4

REPORT INFORMATION
  Report Type: Spontaneous
  Country: US (occurrence: US)
  Receive Date: 20201117
  Receipt Date: 20201117
  Transmission Date: 20210114
  Serious: No
  Sender: FDA-Public Use
  Company Number: None

PATIENT
  Age: 6 Decade
  Sex: Female

DRUGS (4)
  1. METHYLPREDNISOLONE. [Suspect]
     Active Substance: METHYLPREDNISOLONE
     Dosage: ?          OTHER DOSE:15-60MG;?
     Route: 058
     Dates: start: 2020
  2. PIPERACILLIN AND TAZOBACTAM [Suspect]
     Active Substance: PIPERACILLIN SODIUM\TAZOBACTAM SODIUM
  3. MOXIFLOXACIN. [Suspect]
     Active Substance: MOXIFLOXACIN
  4. LOPINAVIR-RITONAVIR [Suspect]
     Active Substance: LOPINAVIR\RITONAVIR
     Indication: COVID-19
     Dosage: ?          OTHER DOSE:400/100MG;?
     Route: 048
     Dates: start: 2020

REACTIONS (10)
  - Inflammation [None]
  - Cytokine storm [None]
  - Hypoxia [None]
  - Off label use [None]
  - Shock [None]
  - Acute respiratory distress syndrome [None]
  - Cardiopulmonary failure [None]
  - Respiratory tract infection [None]
  - Pneumonia [None]
  - Hyperpyrexia [None]
